FAERS Safety Report 5509706-4 (Version None)
Quarter: 2007Q4

REPORT INFORMATION
  Report Type: 
  Country: None (occurrence: None)
  Receive Date: 20071108
  Receipt Date: 20071031
  Transmission Date: 20080405
  Serious: Yes (Hospitalization)
  Sender: FDA-Public Use
  Company Number: US-JNJFOC-20070403352

PATIENT
  Sex: Female
  Weight: 74.39 kg

DRUGS (2)
  1. ORTHO EVRA [Suspect]
     Route: 062
  2. ORTHO EVRA [Suspect]
     Indication: MIGRAINE PROPHYLAXIS
     Route: 062

REACTIONS (3)
  - ARTERY DISSECTION [None]
  - CEREBRAL INFARCTION [None]
  - THROMBOSIS [None]
